FAERS Safety Report 11233201 (Version 1)
Quarter: 2015Q3

REPORT INFORMATION
  Report Type: Spontaneous
  Country: US (occurrence: US)
  Receive Date: 20150701
  Receipt Date: 20150701
  Transmission Date: 20151125
  Serious: No
  Sender: FDA-Public Use
  Company Number: US-009507513-1506USA007127

PATIENT
  Age: 30 Year
  Sex: Female
  Weight: 66.67 kg

DRUGS (1)
  1. NUVARING [Suspect]
     Active Substance: ETHINYL ESTRADIOL\ETONOGESTREL
     Indication: MENSTRUAL CYCLE MANAGEMENT
     Dosage: FOUR WEEKS WITH NO FREE WEEK
     Route: 067
     Dates: start: 20140412, end: 20150610

REACTIONS (3)
  - Drug prescribing error [Unknown]
  - Menorrhagia [Recovering/Resolving]
  - Drug administration error [Unknown]

NARRATIVE: CASE EVENT DATE: 20140412
